FAERS Safety Report 12098597 (Version 1)
Quarter: 2016Q1

REPORT INFORMATION
  Report Type: Spontaneous
  Country: FR (occurrence: FR)
  Receive Date: 20160222
  Receipt Date: 20160222
  Transmission Date: 20160526
  Serious: Yes (Other)
  Sender: FDA-Public Use
  Company Number: FR-ZYDUS-010296

PATIENT
  Age: 39 Year
  Sex: Male

DRUGS (3)
  1. ATENOLOL/ATENOLOL HYDROCHLORIDE [Suspect]
     Active Substance: ATENOLOL HYDROCHLORIDE
     Indication: VENTRICULAR TACHYCARDIA
     Route: 048
  2. ACETYLSALICYLIC ACID [Concomitant]
     Active Substance: ASPIRIN
     Indication: VENTRICULAR TACHYCARDIA
  3. TICAGRELOR [Suspect]
     Active Substance: TICAGRELOR
     Indication: VENTRICULAR TACHYCARDIA
     Route: 065

REACTIONS (2)
  - Rhythm idioventricular [Unknown]
  - Sinus node dysfunction [Unknown]
